FAERS Safety Report 5735614-X (Version None)
Quarter: 2008Q2

REPORT INFORMATION
  Report Type: 
  Country: None (occurrence: None)
  Receive Date: 20080512
  Receipt Date: 20080430
  Transmission Date: 20081010
  Serious: Yes (Life-Threatening, Hospitalization, Other)
  Sender: FDA-Public Use
  Company Number: US-PFIZER INC-2008037438

PATIENT
  Sex: Female
  Weight: 63.5 kg

DRUGS (4)
  1. CHANTIX [Suspect]
     Indication: SMOKING CESSATION THERAPY
  2. XANAX [Concomitant]
  3. HYDROCODONE BITARTRATE [Concomitant]
  4. LOTREL [Concomitant]
     Indication: HYPERTENSION

REACTIONS (5)
  - APPARENT DEATH [None]
  - BLOOD ALCOHOL INCREASED [None]
  - ILL-DEFINED DISORDER [None]
  - MOOD SWINGS [None]
  - SUICIDE ATTEMPT [None]
